FAERS Safety Report 9747491 (Version 2)
Quarter: 2015Q2

REPORT INFORMATION
  Report Type: Report from Study
  Country: CZ (occurrence: CZ)
  Receive Date: 20131212
  Receipt Date: 20150417
  Transmission Date: 20150821
  Serious: Yes (Death)
  Sender: FDA-Public Use
  Company Number: CZ-ROCHE-1318190

PATIENT
  Age: 76 Year
  Sex: Male

DRUGS (1)
  1. RANIBIZUMAB [Suspect]
     Active Substance: RANIBIZUMAB
     Indication: PRODUCT USED FOR UNKNOWN INDICATION
     Dosage: 15/AUG/2012: SUBSQUENT DOSE
     Route: 065
     Dates: start: 20120522

REACTIONS (1)
  - Death [Fatal]

NARRATIVE: CASE EVENT DATE: 20130205
